FAERS Safety Report 9144125 (Version 5)
Quarter: 2014Q1

REPORT INFORMATION
  Report Type: Report from Study
  Country: US (occurrence: US)
  Receive Date: 20130306
  Receipt Date: 20140328
  Transmission Date: 20141002
  Serious: Yes (Other)
  Sender: FDA-Public Use
  Company Number: US-VIIV HEALTHCARE LIMITED-B0872133A

PATIENT
  Age: 40 Year
  Sex: Male
  Weight: 99.5 kg

DRUGS (5)
  1. MARAVIROC [Suspect]
     Indication: HIV INFECTION
     Dosage: 150MG PER DAY
     Route: 048
     Dates: start: 20120606, end: 20130220
  2. DARUNAVIR [Suspect]
     Indication: HIV INFECTION
     Dosage: 800MG PER DAY
     Route: 048
     Dates: start: 20120606
  3. RITONAVIR [Suspect]
     Indication: HIV INFECTION
     Dosage: 100MG PER DAY
     Route: 048
     Dates: start: 20120606
  4. MULTIVITAMIN [Concomitant]
     Dates: start: 201201
  5. FISH OIL [Concomitant]
     Dates: start: 201201

REACTIONS (1)
  - Hodgkin^s disease [Not Recovered/Not Resolved]
